FAERS Safety Report 5751628-8 (Version None)
Quarter: 2008Q2

REPORT INFORMATION
  Report Type: 
  Country: None (occurrence: None)
  Receive Date: 20080528
  Receipt Date: 20080520
  Transmission Date: 20081010
  Serious: Yes (Other)
  Sender: FDA-Public Use
  Company Number: PHBS2008IT04587

PATIENT
  Age: 36 Year
  Sex: Female

DRUGS (4)
  1. CARBAMAZEPINE [Suspect]
     Indication: BIPOLAR I DISORDER
     Dosage: 600 MG/DAY
  2. IMIPRAMINE [Suspect]
     Indication: DEPRESSION
     Dosage: 150 MG/DAY
  3. LITHIUM CARBONATE [Suspect]
     Indication: BIPOLAR I DISORDER
     Dosage: 1000 MG/DAY
  4. FLUOXETINE HCL [Suspect]
     Indication: DEPRESSION
     Dosage: 40 MG/DAY

REACTIONS (2)
  - HYPOTHYROIDISM [None]
  - RASH [None]
